FAERS Safety Report 16896333 (Version 1)
Quarter: 2019Q4

REPORT INFORMATION
  Report Type: Not Available
  Country: CA (occurrence: CA)
  Receive Date: 20191008
  Receipt Date: 20191008
  Transmission Date: 20200122
  Serious: Yes (Other)
  Sender: FDA-Public Use
  Company Number: CA-ANIPHARMA-2019-CA-001365

PATIENT
  Age: 63 Year
  Sex: Female
  Weight: 61 kg

DRUGS (7)
  1. ZOFRAN [Suspect]
     Active Substance: ONDANSETRON HYDROCHLORIDE
     Indication: VOMITING
     Dosage: UNKNOWN
     Route: 065
  2. DEXAMETHASONE. [Concomitant]
     Active Substance: DEXAMETHASONE
     Dosage: UNKNOWN
     Route: 065
  3. METOCLOPRAMIDE HYDROCHLORIDE. [Concomitant]
     Active Substance: METOCLOPRAMIDE HYDROCHLORIDE
     Dosage: UNKNOWN
     Route: 065
  4. NAPROXEN. [Concomitant]
     Active Substance: NAPROXEN
     Dosage: UNKNOWN
  5. TAXOL [Suspect]
     Active Substance: PACLITAXEL
     Indication: PRODUCT USED FOR UNKNOWN INDICATION
     Dosage: UNKNOWN
     Route: 065
  6. PROPRANOLOL EXTENDED RELEASE CAPSULES (NON-SPECIFIC) [Suspect]
     Active Substance: PROPRANOLOL HYDROCHLORIDE
     Indication: HYPERTENSION
     Dosage: 1 EVERY DAY
     Route: 065
  7. AVASTIN [Suspect]
     Active Substance: BEVACIZUMAB
     Indication: OVARIAN CANCER STAGE III
     Dosage: 900 MG, 1 EVERY 3 WEEK (S) ; 975 MG, 1 EVERY 3 WEEK (S); 915 MG, 1 EVERY 3 WEEK (S) UNKNOWN
     Route: 042

REACTIONS (28)
  - Fatigue [Unknown]
  - Nasopharyngitis [Unknown]
  - Pain [Unknown]
  - Rhinorrhoea [Unknown]
  - Drug ineffective [Unknown]
  - Epistaxis [Unknown]
  - Sinus congestion [Unknown]
  - Headache [Unknown]
  - Cellulitis [Unknown]
  - Hordeolum [Unknown]
  - Asthenia [Unknown]
  - Oropharyngeal pain [Unknown]
  - Upper respiratory tract infection [Unknown]
  - Blood pressure systolic increased [Unknown]
  - Lower respiratory tract infection [Unknown]
  - Hypotension [Unknown]
  - Dyspnoea [Unknown]
  - Oral herpes [Unknown]
  - Upper respiratory tract congestion [Unknown]
  - Weight fluctuation [Unknown]
  - Dyspepsia [Unknown]
  - Abdominal pain [Unknown]
  - Nausea [Unknown]
  - Constipation [Unknown]
  - Cough [Unknown]
  - Eye infection [Unknown]
  - Hypertension [Unknown]
  - Blood pressure increased [Unknown]
